FAERS Safety Report 7713360-0 (Version None)
Quarter: 2011Q3

REPORT INFORMATION
  Report Type: 
  Country: None (occurrence: None)
  Receive Date: 20110826
  Receipt Date: 20110818
  Transmission Date: 20111222
  Serious: Yes (Hospitalization)
  Sender: FDA-Public Use
  Company Number: US-BAYER-201038215NA

PATIENT
  Age: 51 Year
  Sex: Female
  Weight: 101 kg

DRUGS (3)
  1. YAZ [Suspect]
     Indication: MENORRHAGIA
     Dosage: UNK
     Route: 048
     Dates: start: 20080910, end: 20081130
  2. ATIVAN [Concomitant]
     Dosage: UNK
     Dates: start: 20081206
  3. ANTIBIOTICS [Concomitant]

REACTIONS (4)
  - THROMBOPHLEBITIS SUPERFICIAL [None]
  - DEEP VEIN THROMBOSIS [None]
  - PULMONARY EMBOLISM [None]
  - PAIN [None]
